FAERS Safety Report 24581201 (Version 1)
Quarter: 2024Q4

REPORT INFORMATION
  Report Type: Report from Study
  Country: CA (occurrence: CA)
  Receive Date: 20241105
  Receipt Date: 20241105
  Transmission Date: 20250114
  Serious: Yes (Death, Other)
  Sender: IPSEN BIOPHARMACEUTICALS, INC.
  Company Number: CA-IPSEN Group, Research and Development-2024-22303

PATIENT
  Age: 72 Year
  Sex: Male

DRUGS (11)
  1. LANREOTIDE ACETATE [Suspect]
     Active Substance: LANREOTIDE ACETATE
     Indication: Gastroenteropancreatic neuroendocrine tumour disease
     Dosage: DEEP SUBCUTANEOUS
     Route: 058
     Dates: start: 20240718
  2. JARDIANCE [Concomitant]
     Active Substance: EMPAGLIFLOZIN
  3. AMLODIPINE [Concomitant]
     Active Substance: AMLODIPINE BESYLATE
  4. ROSUVASTATIN [Concomitant]
     Active Substance: ROSUVASTATIN
  5. TAMSULOSIN [Concomitant]
     Active Substance: TAMSULOSIN
  6. BACLOFEN [Concomitant]
     Active Substance: BACLOFEN
     Dosage: AS NEEDED
  7. BISOPROLOL [Concomitant]
     Active Substance: BISOPROLOL\BISOPROLOL FUMARATE
  8. CALCITRIOL [Concomitant]
     Active Substance: CALCITRIOL
  9. ASPIRIN [Concomitant]
     Active Substance: ASPIRIN
  10. PREDNISONE [Concomitant]
     Active Substance: PREDNISONE
     Dosage: AS NEEDED
  11. ELIGARD [Concomitant]
     Active Substance: LEUPROLIDE ACETATE
     Dosage: AS NEEDED

REACTIONS (1)
  - Death [Fatal]

NARRATIVE: CASE EVENT DATE: 20241023
